FAERS Safety Report 8855052 (Version 1)
Quarter: 2012Q4

REPORT INFORMATION
  Report Type: 
  Country: US (occurrence: US)
  Receive Date: 20121023
  Receipt Date: 20121023
  Transmission Date: 20130627
  Serious: No
  Sender: FDA-Public Use
  Company Number: US-B.I. PHARMACEUTICALS,INC./RIDGEFIELD-2012-BP-25167BP

PATIENT
  Age: 75 Year
  Sex: Male
  Weight: 104 kg

DRUGS (6)
  1. SPIRIVA [Suspect]
     Indication: CHRONIC OBSTRUCTIVE PULMONARY DISEASE
     Dosage: 18 mcg
     Route: 055
     Dates: start: 20121004
  2. ATORVASTATIN [Concomitant]
     Indication: BLOOD CHOLESTEROL INCREASED
     Dosage: 40 mg
     Route: 048
     Dates: start: 201110
  3. METOPROLOL [Concomitant]
     Indication: CARDIAC DISORDER
     Dosage: 100 mg
     Route: 048
     Dates: start: 201110
  4. VIAGRA [Concomitant]
     Indication: PULMONARY HYPERTENSION
     Dosage: 50 mg
     Route: 048
     Dates: start: 201104, end: 20120918
  5. FUROSEMIDE [Concomitant]
     Indication: JOINT SWELLING
     Dosage: 40 mg
     Dates: start: 2010
  6. NEXIUM [Concomitant]
     Indication: GASTROOESOPHAGEAL REFLUX DISEASE
     Dosage: 40 mg
     Dates: start: 2010

REACTIONS (1)
  - Dyspnoea [Not Recovered/Not Resolved]
